FAERS Safety Report 4296143-6 (Version None)
Quarter: 2004Q1

REPORT INFORMATION
  Report Type: 
  Country: None (occurrence: None)
  Receive Date: 20040217
  Receipt Date: 20030822
  Transmission Date: 20041129
  Serious: Yes (Other)
  Sender: FDA-Public Use
  Company Number: US-GLAXOSMITHKLINE-A0423738A

PATIENT
  Age: 47 Year
  Sex: Male
  Weight: 113.6 kg

DRUGS (3)
  1. LAMICTAL [Suspect]
     Indication: SCHIZOAFFECTIVE DISORDER
     Dosage: 75MG TWICE PER DAY
     Route: 048
  2. SEROQUEL [Concomitant]
     Dosage: 100MG PER DAY
  3. LEXAPRO [Concomitant]
     Dosage: 10MG PER DAY

REACTIONS (1)
  - TIC [None]
